FAERS Safety Report 25697911 (Version 3)
Quarter: 2025Q4

REPORT INFORMATION
  Report Type: Spontaneous
  Country: US (occurrence: US)
  Receive Date: 20250819
  Receipt Date: 20251010
  Transmission Date: 20260117
  Serious: Yes (Hospitalization, Other)
  Sender: BRISTOL-MYERS SQUIBB COMPANY
  Company Number: US-BRISTOL-MYERS SQUIBB COMPANY-2025-114449

PATIENT
  Age: 86 Year
  Sex: Male

DRUGS (1)
  1. REVLIMID [Suspect]
     Active Substance: LENALIDOMIDE
     Indication: 5q minus syndrome
     Dosage: DAILY

REACTIONS (8)
  - White blood cell count decreased [Unknown]
  - Fall [Unknown]
  - Atrial fibrillation [Unknown]
  - Anaemia [Unknown]
  - Fatigue [Unknown]
  - Muscular weakness [Unknown]
  - Dry skin [Unknown]
  - Hypotension [Unknown]
